FAERS Safety Report 9259251 (Version 1)
Quarter: 2013Q2

REPORT INFORMATION
  Report Type: Spontaneous
  Country: US (occurrence: US)
  Receive Date: 20130426
  Receipt Date: 20130426
  Transmission Date: 20140414
  Serious: No
  Sender: FDA-Public Use
  Company Number: US-ASTRAZENECA-2013SE23600

PATIENT
  Sex: Female

DRUGS (3)
  1. NEXIUM [Suspect]
     Route: 048
  2. GENERICS [Suspect]
     Route: 065
  3. VERY EXPENSIVE MEDS [Concomitant]

REACTIONS (2)
  - Systemic lupus erythematosus [Unknown]
  - Drug effect decreased [Unknown]
